FAERS Safety Report 18947712 (Version 2)
Quarter: 2021Q4

REPORT INFORMATION
  Report Type: Spontaneous
  Country: US (occurrence: US)
  Receive Date: 20210226
  Receipt Date: 20211029
  Transmission Date: 20220303
  Serious: Yes (Other)
  Sender: FDA-Public Use
  Company Number: US-TAKEDA-2021TUS011057

PATIENT
  Sex: Female
  Weight: 70 kg

DRUGS (2)
  1. LIALDA [Suspect]
     Active Substance: MESALAMINE
     Indication: Colitis ulcerative
     Dosage: 1.2 GRAM, QD
     Route: 048
  2. ROWASA [Concomitant]
     Active Substance: MESALAMINE
     Indication: Condition aggravated
     Route: 065

REACTIONS (4)
  - Haemorrhage [Unknown]
  - Large intestinal ulcer [Unknown]
  - Illness [Unknown]
  - Inappropriate schedule of product administration [Unknown]
